FAERS Safety Report 14869446 (Version 1)
Quarter: 2018Q2

REPORT INFORMATION
  Report Type: Spontaneous
  Country: US (occurrence: US)
  Receive Date: 20180423
  Receipt Date: 20180423
  Transmission Date: 20180711
  Serious: Yes (Hospitalization)
  Sender: FDA-Public Use
  Company Number: None

PATIENT
  Sex: Female

DRUGS (3)
  1. NEULASTA [Concomitant]
     Active Substance: PEGFILGRASTIM
  2. LONSURF [Suspect]
     Active Substance: TIPIRACIL HYDROCHLORIDE\TRIFLURIDINE
     Indication: CARCINOID TUMOUR
     Dosage: FOR 2 WEEKS
     Route: 048
     Dates: start: 20170428
  3. LONSURF [Suspect]
     Active Substance: TIPIRACIL HYDROCHLORIDE\TRIFLURIDINE
     Indication: CARCINOID TUMOUR
     Dosage: FOR 2 WEEKS
     Route: 048
     Dates: start: 20170428

REACTIONS (5)
  - Brain neoplasm [None]
  - Muscular weakness [None]
  - Cerebral haemorrhage [None]
  - Clumsiness [None]
  - Brain oedema [None]
